FAERS Safety Report 4839581-2 (Version None)
Quarter: 2005Q4

REPORT INFORMATION
  Report Type: 
  Country: None (occurrence: None)
  Receive Date: 20051123
  Receipt Date: 20051110
  Transmission Date: 20060501
  Serious: Yes (Other)
  Sender: FDA-Public Use
  Company Number: FR-2005-013732

PATIENT
  Age: 49 Year
  Sex: Female
  Weight: 44 kg

DRUGS (3)
  1. BETAFERON (INTERFERON BETA-1B)INJECTION, 250?G [Suspect]
     Indication: MULTIPLE SCLEROSIS
     Dosage: 8 MIU, 3X/WEEK, SUBCUTANEOUS
     Route: 058
     Dates: start: 20021001
  2. LEXOMIL (BROMAZEPAM) [Concomitant]
  3. LAROXYL [Concomitant]

REACTIONS (2)
  - ANTI-THYROID ANTIBODY POSITIVE [None]
  - HYPERTHYROIDISM [None]
